FAERS Safety Report 6865414-9 (Version None)
Quarter: 2010Q3

REPORT INFORMATION
  Report Type: 
  Country: None (occurrence: None)
  Receive Date: 20100721
  Receipt Date: 20080422
  Transmission Date: 20110219
  Serious: No
  Sender: FDA-Public Use
  Company Number: US-PFIZER INC-2008035597

PATIENT
  Sex: Female
  Weight: 59.1 kg

DRUGS (6)
  1. CHANTIX [Suspect]
     Indication: SMOKING CESSATION THERAPY
     Dates: start: 20080414
  2. LEXAPRO [Concomitant]
     Indication: DEPRESSION
  3. ALL OTHER THERAPEUTIC PRODUCTS [Concomitant]
  4. PREMARIN [Concomitant]
  5. PROPECIA [Concomitant]
     Indication: SKIN DISORDER
  6. PROPECIA [Concomitant]
     Indication: ALOPECIA

REACTIONS (2)
  - DIZZINESS [None]
  - NAUSEA [None]
